FAERS Safety Report 9832554 (Version 1)
Quarter: 2014Q1

REPORT INFORMATION
  Report Type: Spontaneous
  Country: IN (occurrence: IN)
  Receive Date: 20140121
  Receipt Date: 20140121
  Transmission Date: 20141002
  Serious: Yes (Hospitalization)
  Sender: FDA-Public Use
  Company Number: IN-ASTRAZENECA-2014SE02573

PATIENT
  Age: 32 Year
  Sex: Male

DRUGS (4)
  1. QUETIAPINE [Suspect]
     Route: 048
  2. QUETIAPINE [Suspect]
     Dosage: 400-600 MG DAILY
     Route: 048
  3. ZOLPIDEM [Concomitant]
     Indication: SLEEP DISORDER
  4. SODIUM VALPROATE [Concomitant]
     Indication: IRRITABILITY

REACTIONS (5)
  - Drug dependence [Unknown]
  - Intentional drug misuse [Unknown]
  - Drug abuse [Unknown]
  - Sleep disorder [Unknown]
  - Irritability [Unknown]
